FAERS Safety Report 25717881 (Version 1)
Quarter: 2025Q3

REPORT INFORMATION
  Report Type: Spontaneous
  Country: CO (occurrence: CO)
  Receive Date: 20250822
  Receipt Date: 20250822
  Transmission Date: 20251020
  Serious: Yes (Hospitalization)
  Sender: BAYER HEALTHCARE PHARMACEUTICALS INC.
  Company Number: CO-BAYER-2025A110645

PATIENT
  Sex: Male

DRUGS (1)
  1. ADEMPAS [Suspect]
     Active Substance: RIOCIGUAT
     Indication: Pulmonary hypertension
     Dosage: 1.5 MG, Q8HR
     Route: 048

REACTIONS (5)
  - Renal failure [Not Recovered/Not Resolved]
  - Swelling [Not Recovered/Not Resolved]
  - Disease progression [Not Recovered/Not Resolved]
  - Cardiac disorder [Not Recovered/Not Resolved]
  - Product dose omission issue [None]

NARRATIVE: CASE EVENT DATE: 20250606
